FAERS Safety Report 25171811 (Version 1)
Quarter: 2025Q2

REPORT INFORMATION
  Report Type: Spontaneous
  Country: PL (occurrence: PL)
  Receive Date: 20250408
  Receipt Date: 20250408
  Transmission Date: 20250716
  Serious: Yes (Hospitalization, Other)
  Sender: EPIC PHARM
  Company Number: PL-EPICPHARMA-PL-2025EPCLIT00410

PATIENT
  Age: 60 Year
  Sex: Male

DRUGS (8)
  1. CEFTRIAXONE SODIUM [Suspect]
     Active Substance: CEFTRIAXONE SODIUM
     Indication: Plasmodium falciparum infection
     Route: 042
  2. ARTEMETHER [Concomitant]
     Active Substance: ARTEMETHER
     Route: 042
  3. ARTESUNATE [Concomitant]
     Active Substance: ARTESUNATE
     Route: 042
  4. AMOXICILLIN\CLAVULANIC ACID [Concomitant]
     Active Substance: AMOXICILLIN\CLAVULANIC ACID
     Indication: Product used for unknown indication
     Route: 065
  5. DOXYCYCLINE [Concomitant]
     Active Substance: DOXYCYCLINE
     Route: 048
  6. HEPARIN [Concomitant]
     Active Substance: HEPARIN SODIUM
     Indication: Product used for unknown indication
     Route: 065
  7. UNSPECIFIED INGREDIENT [Concomitant]
     Active Substance: UNSPECIFIED INGREDIENT
     Indication: Product used for unknown indication
     Route: 065
  8. VANCOMYCIN [Concomitant]
     Active Substance: VANCOMYCIN
     Indication: Product used for unknown indication
     Route: 048

REACTIONS (3)
  - Acute kidney injury [Recovered/Resolved]
  - Haemolysis [Recovered/Resolved]
  - Product use in unapproved indication [Unknown]
